FAERS Safety Report 19193988 (Version 1)
Quarter: 2021Q2

REPORT INFORMATION
  Report Type: Spontaneous
  Country: HR (occurrence: HR)
  Receive Date: 20210429
  Receipt Date: 20210429
  Transmission Date: 20210717
  Serious: Yes (Other)
  Sender: FDA-Public Use
  Company Number: HR-ROCHE-2815994

PATIENT
  Age: 81 Year
  Sex: Male

DRUGS (1)
  1. TECENTRIQ [Suspect]
     Active Substance: ATEZOLIZUMAB
     Indication: TRANSITIONAL CELL CARCINOMA METASTATIC
     Route: 041
     Dates: start: 201901, end: 202103

REACTIONS (3)
  - Skin toxicity [Unknown]
  - Nephropathy toxic [Unknown]
  - Musculoskeletal toxicity [Unknown]
